FAERS Safety Report 9856684 (Version 1)
Quarter: 2014Q1

REPORT INFORMATION
  Report Type: Spontaneous
  Country: ES (occurrence: None)
  Receive Date: 20140127
  Receipt Date: 20140127
  Transmission Date: 20141002
  Serious: Yes (Other)
  Sender: FDA-Public Use
  Company Number: 7260703

PATIENT
  Sex: Female

DRUGS (1)
  1. EUTHYROX (LEVOTHYROXINE SODIUM)(LEVOTHYROXINE SODIUM) [Suspect]
     Indication: HYPOTHYROIDISM
     Route: 048

REACTIONS (3)
  - Abortion [None]
  - Blood thyroid stimulating hormone increased [None]
  - Maternal exposure during pregnancy [None]
